FAERS Safety Report 24125845 (Version 1)
Quarter: 2024Q3

REPORT INFORMATION
  Report Type: Spontaneous
  Country: US (occurrence: US)
  Receive Date: 20240723
  Receipt Date: 20240723
  Transmission Date: 20241017
  Serious: No
  Sender: ELI LILLY AND CO
  Company Number: US-ELI_LILLY_AND_COMPANY-US202407011686

PATIENT
  Sex: Male

DRUGS (4)
  1. BASAGLAR [Suspect]
     Active Substance: INSULIN GLARGINE
     Indication: Product used for unknown indication
     Dosage: 30 U, DAILY
     Route: 065
  2. BASAGLAR [Suspect]
     Active Substance: INSULIN GLARGINE
     Dosage: 25 U, EACH MORNING
     Route: 065
     Dates: start: 2024
  3. BASAGLAR [Suspect]
     Active Substance: INSULIN GLARGINE
     Dosage: 25 U, EACH EVENING
     Route: 065
     Dates: start: 2024
  4. NOVOLOG [Concomitant]
     Active Substance: INSULIN ASPART
     Indication: Product used for unknown indication

REACTIONS (4)
  - Tremor [Unknown]
  - Injection site pain [Unknown]
  - Hypoglycaemia [Unknown]
  - Inappropriate schedule of product administration [Unknown]

NARRATIVE: CASE EVENT DATE: 20240716
